FAERS Safety Report 12840295 (Version 37)
Quarter: 2019Q3

REPORT INFORMATION
  Report Type: Report from Study
  Country: CA (occurrence: CA)
  Receive Date: 20161012
  Receipt Date: 20190930
  Transmission Date: 20191004
  Serious: Yes (Other)
  Sender: FDA-Public Use
  Company Number: CA-SA-2016SA127760

PATIENT
  Age: 34 Year
  Sex: Female

DRUGS (8)
  1. ACETAMINOPHEN. [Concomitant]
     Active Substance: ACETAMINOPHEN
     Indication: PREMEDICATION
     Dosage: 975 MG,PRN
     Route: 048
     Dates: start: 20160706
  2. ACICLOVIR [Concomitant]
     Active Substance: ACYCLOVIR
     Indication: PREMEDICATION
     Dosage: 200 MG,BID
     Route: 048
     Dates: start: 20160706, end: 20160806
  3. ALEMTUZUMAB [Suspect]
     Active Substance: ALEMTUZUMAB
     Indication: RELAPSING-REMITTING MULTIPLE SCLEROSIS
     Dosage: 12 MG,QD
     Route: 041
     Dates: start: 20160706, end: 20160708
  4. BENADRYL [Concomitant]
     Active Substance: DIPHENHYDRAMINE HYDROCHLORIDE
     Indication: PREMEDICATION
     Dosage: 50 MG,UNK
     Route: 048
     Dates: start: 20160706, end: 20160708
  5. GRAVOL [Concomitant]
     Active Substance: DIMENHYDRINATE
     Indication: PREMEDICATION
     Dosage: 50 MG,UNK
     Route: 048
     Dates: start: 20160706, end: 20160708
  6. METHYLPREDNISOLONE. [Suspect]
     Active Substance: METHYLPREDNISOLONE
     Indication: PREMEDICATION
     Dosage: 1 G,UNK
     Route: 042
     Dates: start: 20160707, end: 20160708
  7. CIMETIDINE [Concomitant]
     Active Substance: CIMETIDINE
     Indication: PREMEDICATION
     Dosage: 200 MG,UNK
     Route: 048
     Dates: start: 20160706, end: 20160708
  8. BOTOX [Concomitant]
     Active Substance: ONABOTULINUMTOXINA
     Indication: MUSCLE SPASMS
     Dosage: UNK, UNK

REACTIONS (48)
  - Bronchitis [Recovering/Resolving]
  - Weight abnormal [Not Recovered/Not Resolved]
  - Neutropenia [Recovered/Resolved]
  - Thyroid function test abnormal [Recovered/Resolved]
  - Swelling [Recovered/Resolved]
  - Arthralgia [Recovered/Resolved]
  - Escherichia test positive [Unknown]
  - Hyperthyroidism [Unknown]
  - Blood creatinine decreased [Recovered/Resolved]
  - Metrorrhagia [Not Recovered/Not Resolved]
  - Thyroid function test abnormal [Recovered/Resolved]
  - Thyroxine free decreased [Recovered/Resolved]
  - Haematocrit decreased [Recovered/Resolved]
  - Urinary tract infection [Recovered/Resolved]
  - Joint swelling [Not Recovered/Not Resolved]
  - Hypoaesthesia [Unknown]
  - Malaise [Recovered/Resolved]
  - Unevaluable event [Not Recovered/Not Resolved]
  - Neck pain [Recovering/Resolving]
  - Culture urine positive [Not Recovered/Not Resolved]
  - Thyroxine free increased [Recovered/Resolved]
  - Blood thyroid stimulating hormone decreased [Recovered/Resolved]
  - Lymphocyte count decreased [Recovered/Resolved]
  - Alopecia [Not Recovered/Not Resolved]
  - Vision blurred [Not Recovered/Not Resolved]
  - Haemoglobin decreased [Recovered/Resolved]
  - Neutrophil count decreased [Recovered/Resolved]
  - White blood cell count increased [Recovered/Resolved]
  - Glucose urine present [Recovered/Resolved]
  - Urine abnormality [Not Recovered/Not Resolved]
  - Urine leukocyte esterase positive [Not Recovered/Not Resolved]
  - Nitrite urine present [Recovered/Resolved]
  - White blood cell count decreased [Recovered/Resolved]
  - Blood urine present [Recovered/Resolved]
  - Faeces hard [Recovering/Resolving]
  - Exposure during pregnancy [Recovered/Resolved]
  - Hypothyroidism [Not Recovered/Not Resolved]
  - Blood thyroid stimulating hormone decreased [Recovered/Resolved]
  - Abdominal discomfort [Recovered/Resolved]
  - Carpal tunnel syndrome [Recovering/Resolving]
  - Urine ketone body present [Recovered/Resolved]
  - Thyroid function test abnormal [Not Recovered/Not Resolved]
  - Culture urine positive [Recovered/Resolved]
  - Enterococcus test positive [Recovered/Resolved]
  - Cystitis [Recovered/Resolved]
  - Headache [Recovering/Resolving]
  - Pain [Not Recovered/Not Resolved]
  - Hyperhidrosis [Not Recovered/Not Resolved]

NARRATIVE: CASE EVENT DATE: 2016
